FAERS Safety Report 7957277-5 (Version None)
Quarter: 2011Q4

REPORT INFORMATION
  Report Type: 
  Country: None (occurrence: None)
  Receive Date: 20111201
  Receipt Date: 20111118
  Transmission Date: 20120403
  Serious: Yes (Other)
  Sender: FDA-Public Use
  Company Number: FK201102738

PATIENT
  Age: 57 Year
  Sex: Female
  Weight: 97.5 kg

DRUGS (9)
  1. CYCLOPHOSPHAMIDE [Concomitant]
  2. METOCLOPRAMIDE (METOCLOPRAMIDE) (METOCLOPRAMIDE) [Concomitant]
  3. DEXAMETHASONE [Concomitant]
  4. CITALOPRAM HYDROBROMIDE [Concomitant]
  5. ANASTRAZOLE [Suspect]
     Indication: BREAST CANCER
     Dosage: 1 MG, ORAL
     Route: 048
     Dates: start: 20110901, end: 20110920
  6. EPIRUBICIN (EPIRUBICIN) (EPIRUBICIN) [Concomitant]
  7. FOLIC ACID [Concomitant]
  8. ONDANSETRON (ONDANSETRON0 (ONDANSETRON) [Concomitant]
  9. LANSOPRAZOLE [Concomitant]

REACTIONS (1)
  - STEVENS-JOHNSON SYNDROME [None]
